FAERS Safety Report 4777977-8 (Version None)
Quarter: 2005Q3

REPORT INFORMATION
  Report Type: 
  Country: None (occurrence: None)
  Receive Date: 20050921
  Receipt Date: 20050912
  Transmission Date: 20060218
  Serious: Yes (Other)
  Sender: FDA-Public Use
  Company Number: 2005125856

PATIENT
  Age: 66 Year
  Sex: Female

DRUGS (3)
  1. CELEBREX [Suspect]
     Indication: BACK PAIN
     Dosage: 400 MG (200 MG, 2 IN 1 D), ORAL
     Route: 048
     Dates: start: 20030101, end: 20040901
  2. PANODIL FORTE (PARACETAMOL) [Concomitant]
  3. TRADOLAN (TRAMADOL HYDROCHLORIDE) [Concomitant]

REACTIONS (14)
  - ARTHROPOD BITE [None]
  - BLISTER [None]
  - BORRELIA INFECTION [None]
  - ECZEMA [None]
  - ERYTHEMA [None]
  - LIP DRY [None]
  - ONYCHOLYSIS [None]
  - ORAL DISCOMFORT [None]
  - PSORIASIS [None]
  - RASH PAPULAR [None]
  - SKIN DISORDER [None]
  - SKIN FISSURES [None]
  - SWELLING [None]
  - THROAT IRRITATION [None]
